FAERS Safety Report 14339114 (Version 1)
Quarter: 2017Q4

REPORT INFORMATION
  Report Type: Other
  Country: RO (occurrence: RO)
  Receive Date: 20171230
  Receipt Date: 20171230
  Transmission Date: 20180321
  Serious: Yes (Hospitalization)
  Sender: FDA-Public Use
  Company Number: RO-GLENMARK PHARMACEUTICALS-2017GMK030254

PATIENT

DRUGS (4)
  1. NEBIVOLOL. [Suspect]
     Active Substance: NEBIVOLOL
     Indication: HYPERTENSION
     Dosage: UNK
     Route: 065
  2. INDAPAMIDE. [Suspect]
     Active Substance: INDAPAMIDE
     Indication: HYPERTENSION
     Dosage: UNK
     Route: 065
  3. THEOPHYLLINE [Suspect]
     Active Substance: THEOPHYLLINE ANHYDROUS
     Indication: ASTHMA
     Dosage: UNK
     Route: 065
  4. IMIQUIMOD. [Suspect]
     Active Substance: IMIQUIMOD
     Indication: BASAL CELL CARCINOMA
     Dosage: UNK, HS (AT BED TIME)
     Route: 061

REACTIONS (5)
  - Skin erosion [Recovering/Resolving]
  - Scratch [Unknown]
  - Blood pressure abnormal [Unknown]
  - Hyperaemia [Unknown]
  - Skin reaction [Unknown]
